FAERS Safety Report 8481025-6 (Version None)
Quarter: 2012Q3

REPORT INFORMATION
  Report Type: 
  Country: None (occurrence: None)
  Receive Date: 20120702
  Receipt Date: 20120621
  Transmission Date: 20120928
  Serious: Yes (Disabling)
  Sender: FDA-Public Use
  Company Number: GB-ASTRAZENECA-2012SE41865

PATIENT
  Age: 83 Year
  Sex: Female
  Weight: 49.1 kg

DRUGS (4)
  1. CONOTRANE [Concomitant]
     Dates: start: 20120314, end: 20120411
  2. ANASTROZOLE [Suspect]
     Route: 048
     Dates: start: 20120308
  3. IBUPROFEN [Concomitant]
     Dates: start: 20120302, end: 20120330
  4. TAMOXIFEN CITRATE [Concomitant]
     Dates: start: 20120329, end: 20120330

REACTIONS (1)
  - SUICIDAL IDEATION [None]
